FAERS Safety Report 19683774 (Version 1)
Quarter: 2021Q3

REPORT INFORMATION
  Report Type: Spontaneous
  Country: US (occurrence: US)
  Receive Date: 20210811
  Receipt Date: 20210811
  Transmission Date: 20211014
  Serious: No
  Sender: FDA-Public Use
  Company Number: US-CIPLA LTD.-2021US04185

PATIENT

DRUGS (8)
  1. DICLOFENAC [Suspect]
     Active Substance: DICLOFENAC
     Indication: ARTHRALGIA
     Dosage: 2 GRAM, BID, FOR SEVERAL YEARS (2?3 YEARS)
     Route: 061
  2. METHOCARBAMOL. [Concomitant]
     Active Substance: METHOCARBAMOL
     Indication: MUSCLE RELAXANT THERAPY
     Dosage: 500 MILLIGRAM, PRN (ONCE EVERY 6 HRS AS NEEDED)
     Route: 065
  3. VASCEPA [Concomitant]
     Active Substance: ICOSAPENT ETHYL
     Indication: SUPPLEMENTATION THERAPY
     Dosage: UNK
     Route: 065
  4. LEVOTHYROXIN [Concomitant]
     Active Substance: LEVOTHYROXINE
     Indication: THYROID DISORDER
     Dosage: 25 MILLIGRAM, QD (SINCE 8 YEARS)
     Route: 065
  5. DICLOFENAC SODIUM. [Concomitant]
     Active Substance: DICLOFENAC SODIUM
     Indication: ARTHRITIS
     Dosage: 25 MILLIGRAM, QD (SINCE APPROXIMATELY 30 YEARS)
     Route: 065
  6. DICLOFENAC [Suspect]
     Active Substance: DICLOFENAC
     Indication: ARTHRITIS
     Dosage: 2 GRAM, BID
     Route: 061
  7. FAMOTIDINE. [Concomitant]
     Active Substance: FAMOTIDINE
     Indication: EPIGASTRIC DISCOMFORT
     Dosage: 40 MILLIGRAM, QD (SINCE 3 YEARS)
     Route: 065
  8. LOSARTAN. [Concomitant]
     Active Substance: LOSARTAN
     Indication: HYPERTENSION
     Dosage: 100 MILLIGRAM, QD (SINCE 10 YEARS)
     Route: 065

REACTIONS (6)
  - Product packaging issue [Unknown]
  - Product use in unapproved indication [Unknown]
  - Product package associated injury [Not Recovered/Not Resolved]
  - Off label use [Unknown]
  - Myalgia [Not Recovered/Not Resolved]
  - Weight decreased [Unknown]
